FAERS Safety Report 12396662 (Version 1)
Quarter: 2016Q2

REPORT INFORMATION
  Report Type: Spontaneous
  Country: US (occurrence: US)
  Receive Date: 20160524
  Receipt Date: 20160524
  Transmission Date: 20160815
  Serious: No
  Sender: FDA-Public Use
  Company Number: US-DRREDDYS-USA/USA/16/0070354

PATIENT
  Sex: Female

DRUGS (1)
  1. SUMATRIPTAN INJECTION [Suspect]
     Active Substance: SUMATRIPTAN
     Indication: MIGRAINE
     Route: 065

REACTIONS (3)
  - Injection site pain [Unknown]
  - Vomiting [Unknown]
  - Nausea [Unknown]
